FAERS Safety Report 7240178-8 (Version None)
Quarter: 2011Q1

REPORT INFORMATION
  Report Type: 
  Country: None (occurrence: None)
  Receive Date: 20110112
  Receipt Date: 20101229
  Transmission Date: 20110831
  Serious: Yes (Hospitalization)
  Sender: FDA-Public Use
  Company Number: 2010US000104

PATIENT
  Age: 83 Year
  Sex: Female

DRUGS (8)
  1. PLAVIX [Concomitant]
  2. LIPITOR [Concomitant]
  3. TEMAZEPAM [Concomitant]
  4. LUMIGAN [Concomitant]
  5. ENTEREG [Suspect]
     Indication: POSTOPERATIVE ILEUS
     Dosage: 12 MG; PO
     Route: 048
     Dates: start: 20100709, end: 20100712
  6. AZOPT [Concomitant]
  7. LEVOTHYROXINE SODIUM [Concomitant]
  8. METOPROLOL [Concomitant]

REACTIONS (2)
  - RENAL FAILURE ACUTE [None]
  - DYSPNOEA [None]
